FAERS Safety Report 16081273 (Version 1)
Quarter: 2019Q1

REPORT INFORMATION
  Report Type: Spontaneous
  Country: FR (occurrence: FR)
  Receive Date: 20190316
  Receipt Date: 20190316
  Transmission Date: 20190418
  Serious: Yes (Hospitalization)
  Sender: FDA-Public Use
  Company Number: FR-ACCORD-113060

PATIENT
  Age: 80 Year
  Sex: Male
  Weight: 71 kg

DRUGS (11)
  1. BISOCE [Concomitant]
     Active Substance: BISOPROLOL
  2. KAYEXALATE [Concomitant]
     Active Substance: SODIUM POLYSTYRENE SULFONATE
  3. PLAVIX [Concomitant]
     Active Substance: CLOPIDOGREL BISULFATE
  4. OROCAL D3 [Suspect]
     Active Substance: CALCIUM CARBONATE\CHOLECALCIFEROL
     Indication: SARCOIDOSIS
     Dosage: SUCKING TABLET
     Route: 048
     Dates: start: 201707, end: 20170719
  5. AMLOR [Concomitant]
     Active Substance: AMLODIPINE BESYLATE
  6. RAMIPRIL. [Suspect]
     Active Substance: RAMIPRIL
     Indication: HYPERTENSION
     Route: 048
     Dates: end: 20170719
  7. SIMVASTATIN. [Concomitant]
     Active Substance: SIMVASTATIN
  8. TARDYFERON [Concomitant]
     Active Substance: FERROUS SULFATE
  9. CORTANCYL [Concomitant]
     Active Substance: PREDNISONE
  10. PARIET [Concomitant]
     Active Substance: RABEPRAZOLE SODIUM
  11. IMODIUM [Concomitant]
     Active Substance: LOPERAMIDE HYDROCHLORIDE

REACTIONS (2)
  - Nephroangiosclerosis [Recovering/Resolving]
  - Hypercalcaemia [Recovered/Resolved]

NARRATIVE: CASE EVENT DATE: 20170719
